FAERS Safety Report 4351494-1 (Version None)
Quarter: 2004Q2

REPORT INFORMATION
  Report Type: 
  Country: None (occurrence: None)
  Receive Date: 20040430
  Receipt Date: 20040430
  Transmission Date: 20050107
  Serious: Yes (Life-Threatening, Hospitalization)
  Sender: FDA-Public Use
  Company Number: None

PATIENT
  Age: 57 Year
  Sex: Male
  Weight: 151 kg

DRUGS (9)
  1. GOODY'S POWDER [Suspect]
     Indication: ARTHRITIS
     Dosage: QD
  2. IBUPROFEN [Suspect]
     Indication: ARTHRITIS
     Dosage: QHS
  3. ASPIRIN [Suspect]
     Dosage: 81MG QD
  4. LASIX [Concomitant]
  5. VASOTEC [Concomitant]
  6. HYDRALAZINE HCL [Concomitant]
  7. CARTIA [Concomitant]
  8. CATAPRES [Concomitant]
  9. COMBIVENT [Concomitant]

REACTIONS (3)
  - ABDOMINAL PAIN [None]
  - BLOOD PRESSURE SYSTOLIC DECREASED [None]
  - HAEMATEMESIS [None]
